FAERS Safety Report 8236758-3 (Version None)
Quarter: 2012Q1

REPORT INFORMATION
  Report Type: 
  Country: None (occurrence: None)
  Receive Date: 20120326
  Receipt Date: 20120315
  Transmission Date: 20120608
  Serious: Yes (Other)
  Sender: FDA-Public Use
  Company Number: AUR-APL-2012-01500

PATIENT
  Age: 53 Year
  Sex: Female
  Weight: 130 kg

DRUGS (3)
  1. LORATADINE [Concomitant]
  2. HYDROCHLOROTHIAZIDE [Suspect]
     Indication: FLUID RETENTION
     Dates: start: 20070101
  3. CELEBREX [Suspect]
     Indication: SPONDYLITIS
     Dosage: 400 MG (200 MG, 2 IN 1 D)
     Dates: start: 20070101

REACTIONS (3)
  - THYROID DISORDER [None]
  - LARYNGITIS [None]
  - CHRONIC OBSTRUCTIVE PULMONARY DISEASE [None]
